FAERS Safety Report 21381092 (Version 1)
Quarter: 2022Q3

REPORT INFORMATION
  Report Type: Report from Study
  Country: US (occurrence: US)
  Receive Date: 20220927
  Receipt Date: 20220927
  Transmission Date: 20221027
  Serious: Yes (Disabling)
  Sender: FDA-Public Use
  Company Number: US-BRISTOL-MYERS SQUIBB COMPANY-2022-085292

PATIENT
  Age: 47 Year
  Sex: Female
  Weight: 61.23 kg

DRUGS (1)
  1. ZEPOSIA [Suspect]
     Active Substance: OZANIMOD HYDROCHLORIDE
     Indication: Multiple sclerosis
     Dosage: DAILY
     Route: 048
     Dates: start: 20220521

REACTIONS (3)
  - Vertigo [Recovering/Resolving]
  - Multiple sclerosis relapse [Unknown]
  - Fall [Unknown]

NARRATIVE: CASE EVENT DATE: 20220521
